FAERS Safety Report 8537915-9 (Version None)
Quarter: 2012Q3

REPORT INFORMATION
  Report Type: 
  Country: None (occurrence: None)
  Receive Date: 20120725
  Receipt Date: 20120713
  Transmission Date: 20120928
  Serious: Yes (Hospitalization)
  Sender: FDA-Public Use
  Company Number: FR-GLAXOSMITHKLINE-B0800386B

PATIENT
  Sex: Female
  Weight: 57 kg

DRUGS (12)
  1. ASPIRIN [Concomitant]
  2. CRESTOR [Concomitant]
  3. TENORMIN [Concomitant]
  4. ACETAMINOPHEN [Concomitant]
  5. PLAVIX [Concomitant]
  6. ARIXTRA [Concomitant]
  7. NEXIUM [Concomitant]
  8. DURAGESIC-100 [Concomitant]
  9. PAZOPANIB [Suspect]
     Indication: LEIOMYOSARCOMA
     Dosage: 88800MG CUMULATIVE DOSE
     Route: 048
     Dates: start: 20120203
  10. FENTANYL [Concomitant]
  11. IMOVANE [Concomitant]
  12. GEMZAR [Suspect]
     Indication: LEIOMYOSARCOMA
     Dosage: 20032MG CUMULATIVE DOSE
     Route: 042
     Dates: start: 20120202

REACTIONS (1)
  - MYOCARDITIS [None]
